FAERS Safety Report 10349645 (Version 1)
Quarter: 2014Q3

REPORT INFORMATION
  Report Type: Spontaneous
  Country: US (occurrence: US)
  Receive Date: 20140730
  Receipt Date: 20140730
  Transmission Date: 20150326
  Serious: Yes (Other)
  Sender: FDA-Public Use
  Company Number: US-ROCHE-1438969

PATIENT
  Sex: Male

DRUGS (2)
  1. XELODA [Suspect]
     Active Substance: CAPECITABINE
     Indication: LUNG NEOPLASM
     Dosage: 14 DAYS ON/ 7 DAYS OFF
     Route: 065
     Dates: start: 20140410
  2. XELODA [Suspect]
     Active Substance: CAPECITABINE
     Indication: COLECTOMY
     Dosage: 14 DAYS ON/ 7 DAYS OFF
     Route: 065
     Dates: start: 20140218, end: 20140410

REACTIONS (11)
  - Immunodeficiency [Unknown]
  - Urinary incontinence [Unknown]
  - Mood altered [Not Recovered/Not Resolved]
  - Vision blurred [Not Recovered/Not Resolved]
  - Aortic disorder [Unknown]
  - Diabetes mellitus [Unknown]
  - Musculoskeletal chest pain [Not Recovered/Not Resolved]
  - Diarrhoea [Unknown]
  - Neuropathy peripheral [Unknown]
  - Skin discolouration [Not Recovered/Not Resolved]
  - Decreased appetite [Not Recovered/Not Resolved]
